FAERS Safety Report 5273251-4 (Version None)
Quarter: 2007Q1

REPORT INFORMATION
  Report Type: 
  Country: None (occurrence: None)
  Receive Date: 20070319
  Receipt Date: 20070308
  Transmission Date: 20070707
  Serious: Yes (Hospitalization)
  Sender: FDA-Public Use
  Company Number: 237974

PATIENT
  Age: 77 Year
  Sex: Female
  Weight: 74 kg

DRUGS (3)
  1. AVASTIN [Suspect]
     Indication: BLADDER CANCER
     Dosage: 15 MG/KG, Q3W, INTRAVENOUS
     Route: 042
     Dates: start: 20061128
  2. CISPLATIN [Suspect]
     Indication: BLADDER CANCER
     Dosage: 50 MG/M2, Q3W, INTRAVENOUS
     Route: 042
     Dates: start: 20061128
  3. GEMCITABINE [Suspect]
     Indication: BLADDER CANCER
     Dosage: 800 MG/M2, DAY 1+8/Q3Q, INTRAVENOUS
     Route: 042
     Dates: start: 20061128

REACTIONS (10)
  - BACTERIA URINE IDENTIFIED [None]
  - BLOOD PRESSURE INCREASED [None]
  - BLOOD URINE PRESENT [None]
  - COMPUTERISED TOMOGRAM ABNORMAL [None]
  - CONFUSIONAL STATE [None]
  - DEMYELINATION [None]
  - ENCEPHALOPATHY [None]
  - HYPERTENSION [None]
  - PROTEIN URINE PRESENT [None]
  - URINARY TRACT INFECTION [None]
